FAERS Safety Report 19269470 (Version 1)
Quarter: 2021Q2

REPORT INFORMATION
  Report Type: Spontaneous
  Country: US (occurrence: US)
  Receive Date: 20210518
  Receipt Date: 20210518
  Transmission Date: 20210717
  Serious: No
  Sender: FDA-Public Use
  Company Number: US-GILEAD-2021-0528042

PATIENT
  Sex: Female

DRUGS (4)
  1. VITAMIN B12 [Concomitant]
     Active Substance: CYANOCOBALAMIN
  2. SOFOSBUVIR;VELPATASVIR [Suspect]
     Active Substance: SOFOSBUVIR\VELPATASVIR
     Indication: CHRONIC HEPATITIS C
     Dosage: 1 DOSAGE FORM, QD
     Route: 048
     Dates: start: 20210419
  3. FLAX, FISH, BORAGE OILS [Concomitant]
  4. OMEGA 3 [FISH OIL] [Concomitant]
     Active Substance: FISH OIL

REACTIONS (2)
  - Fatigue [Unknown]
  - Headache [Unknown]
